FAERS Safety Report 19586881 (Version 6)
Quarter: 2022Q1

REPORT INFORMATION
  Report Type: Report from Study
  Country: US (occurrence: US)
  Receive Date: 20210720
  Receipt Date: 20220316
  Transmission Date: 20220424
  Serious: Yes (Hospitalization, Other)
  Sender: FDA-Public Use
  Company Number: US-ABBVIE-21K-163-3995149-00

PATIENT
  Sex: Female

DRUGS (23)
  1. RINVOQ [Suspect]
     Active Substance: UPADACITINIB
     Indication: Rheumatoid arthritis
     Route: 048
     Dates: start: 202101, end: 20210612
  2. RINVOQ [Suspect]
     Active Substance: UPADACITINIB
     Route: 048
     Dates: start: 20210615
  3. RINVOQ [Suspect]
     Active Substance: UPADACITINIB
     Route: 048
  4. RINVOQ [Suspect]
     Active Substance: UPADACITINIB
     Route: 048
  5. METHOTREXATE [Suspect]
     Active Substance: METHOTREXATE
     Indication: Rheumatoid arthritis
     Dosage: 8 TABLETS
     Route: 048
     Dates: start: 2021, end: 202103
  6. METHOTREXATE [Suspect]
     Active Substance: METHOTREXATE
     Dosage: 4 TABLETS
     Route: 048
     Dates: start: 202103
  7. FOLIC ACID [Concomitant]
     Active Substance: FOLIC ACID
     Indication: Vitamin supplementation
     Dosage: 3 OR 4 MILLIGRAM
     Dates: start: 2020, end: 202103
  8. FOLIC ACID [Concomitant]
     Active Substance: FOLIC ACID
     Route: 048
     Dates: start: 202103
  9. XARELTO [Concomitant]
     Active Substance: RIVAROXABAN
     Indication: Anticoagulant therapy
  10. ORAL B [Concomitant]
     Indication: Stomatitis
  11. MODERNA COVID-19 VACCINE [Concomitant]
     Active Substance: ELASOMERAN
     Indication: COVID-19 immunisation
     Dosage: 1ST DOSE
     Route: 030
     Dates: start: 202103, end: 202103
  12. SYNTHROID [Concomitant]
     Active Substance: LEVOTHYROXINE SODIUM
     Indication: Hypothyroidism
  13. ATORVASTATIN [Concomitant]
     Active Substance: ATORVASTATIN
     Indication: Blood cholesterol increased
  14. DULOXETINE [Concomitant]
     Active Substance: DULOXETINE
     Indication: Depression
  15. PHENTERMINE [Concomitant]
     Active Substance: PHENTERMINE
     Indication: Weight increased
  16. SOMA [Concomitant]
     Active Substance: CARISOPRODOL
     Indication: Pain
  17. VITAMIN B12 [Concomitant]
     Active Substance: CYANOCOBALAMIN
     Indication: Supplementation therapy
  18. CALTRATE [Concomitant]
     Active Substance: CALCIUM CARBONATE
     Indication: Bone disorder
  19. ACETAMINOPHEN [Concomitant]
     Active Substance: ACETAMINOPHEN
     Indication: Headache
  20. VITAMINS [Concomitant]
     Active Substance: VITAMINS
     Indication: Vitamin supplementation
  21. ZEGERID [Concomitant]
     Active Substance: OMEPRAZOLE\SODIUM BICARBONATE
     Indication: Dyspepsia
  22. ZEGERID [Concomitant]
     Active Substance: OMEPRAZOLE\SODIUM BICARBONATE
     Indication: Prophylaxis
  23. JANSSEN COVID-19 VACCINE [Concomitant]
     Active Substance: AD26.COV2.S
     Indication: COVID-19 immunisation
     Route: 030
     Dates: start: 20210521, end: 20210521

REACTIONS (15)
  - Upper limb fracture [Recovering/Resolving]
  - Tibia fracture [Recovering/Resolving]
  - Lower limb fracture [Recovering/Resolving]
  - Rib fracture [Recovering/Resolving]
  - COVID-19 [Recovering/Resolving]
  - Forearm fracture [Recovered/Resolved]
  - Ulcer [Recovered/Resolved]
  - Arthralgia [Recovering/Resolving]
  - Peripheral swelling [Not Recovered/Not Resolved]
  - Lower limb fracture [Recovering/Resolving]
  - Bone density abnormal [Unknown]
  - Osteopenia [Unknown]
  - Osteoporosis [Unknown]
  - Dysstasia [Unknown]
  - Tongue injury [Unknown]

NARRATIVE: CASE EVENT DATE: 20210101
